FAERS Safety Report 18375807 (Version 1)
Quarter: 2020Q4

REPORT INFORMATION
  Report Type: Spontaneous
  Country: US (occurrence: US)
  Receive Date: 20201009
  Receipt Date: 20201009
  Transmission Date: 20210114
  Serious: Yes (Disabling)
  Sender: FDA-Public Use
  Company Number: None

PATIENT
  Age: 54 Year
  Sex: Male
  Weight: 94.5 kg

DRUGS (6)
  1. TRESIBA [Concomitant]
     Active Substance: INSULIN DEGLUDEC
  2. ROSUVASTATIN. [Concomitant]
     Active Substance: ROSUVASTATIN
  3. METFORMIN HYDROCHLORIDE EXTENDED-RELEASE 500 MG TABLETS, USP [Suspect]
     Active Substance: METFORMIN HYDROCHLORIDE
     Indication: DIABETES MELLITUS
     Dosage: ?          QUANTITY:1 TABLET(S);?
     Route: 048
     Dates: start: 20171120, end: 20201009
  4. NOVOLOG [Concomitant]
     Active Substance: INSULIN ASPART
  5. LISINOPRIL MG [Concomitant]
  6. ASPIRIN. [Concomitant]
     Active Substance: ASPIRIN

REACTIONS (2)
  - Arthralgia [None]
  - Recalled product administered [None]

NARRATIVE: CASE EVENT DATE: 20191014
